FAERS Safety Report 6243585-5 (Version None)
Quarter: 2009Q2

REPORT INFORMATION
  Report Type: 
  Country: None (occurrence: None)
  Receive Date: 20090624
  Receipt Date: 20090624
  Transmission Date: 20091009
  Serious: Yes (Other)
  Sender: FDA-Public Use
  Company Number: US-PFIZER INC-2009183349

PATIENT
  Age: 25 Year
  Sex: Female

DRUGS (1)
  1. GABAPENTIN [Suspect]

REACTIONS (2)
  - APLASTIC ANAEMIA [None]
  - BONE MARROW FAILURE [None]
